FAERS Safety Report 21022212 (Version 2)
Quarter: 2022Q4

REPORT INFORMATION
  Report Type: Report from Study
  Country: US (occurrence: US)
  Receive Date: 20220629
  Receipt Date: 20221227
  Transmission Date: 20230112
  Serious: Yes (Hospitalization)
  Sender: FDA-Public Use
  Company Number: US-ABBVIE-22K-163-4451001-00

PATIENT
  Sex: Male

DRUGS (1)
  1. IBRUTINIB [Suspect]
     Active Substance: IBRUTINIB
     Indication: Chronic lymphocytic leukaemia
     Dosage: 140MG CAPSULES
     Route: 048
     Dates: start: 20200128

REACTIONS (4)
  - Myocardial infarction [Unknown]
  - Lung disorder [Unknown]
  - Renal disorder [Unknown]
  - COVID-19 [Unknown]
